FAERS Safety Report 7478693-4 (Version None)
Quarter: 2011Q2

REPORT INFORMATION
  Report Type: 
  Country: None (occurrence: None)
  Receive Date: 20110511
  Receipt Date: 20110511
  Transmission Date: 20111010
  Serious: Yes (Other)
  Sender: FDA-Public Use
  Company Number: None

PATIENT
  Sex: Female
  Weight: 57.3347 kg

DRUGS (1)
  1. ETHINYL ESTRADIOL AND LEVONORGESTREL [Suspect]
     Indication: POLYCYSTIC OVARIES
     Dosage: ONE TAB DAILY PO
     Route: 048
     Dates: start: 20110301, end: 20110401

REACTIONS (2)
  - MUSCLE SPASMS [None]
  - HAEMORRHAGE [None]
